FAERS Safety Report 9354058 (Version 1)
Quarter: 2013Q2

REPORT INFORMATION
  Report Type: Report from Study
  Country: AU (occurrence: AU)
  Receive Date: 20130618
  Receipt Date: 20130618
  Transmission Date: 20140414
  Serious: Yes (Other)
  Sender: FDA-Public Use
  Company Number: AU-JNJFOC-20130605567

PATIENT
  Sex: Female

DRUGS (13)
  1. STELARA [Suspect]
     Indication: PSORIASIS
     Route: 058
     Dates: start: 20110203
  2. STELARA [Suspect]
     Indication: PSORIASIS
     Route: 058
     Dates: start: 20110106
  3. ACETYLSALICYLIC ACID [Concomitant]
  4. ATENOLOL [Concomitant]
  5. CLOPIDOGREL [Concomitant]
  6. GLYCERYL TRINITRATE [Concomitant]
  7. RAMIPRIL [Concomitant]
  8. CANDESARTAN [Concomitant]
  9. INDAPAMIDE [Concomitant]
  10. ROSUVASTATIN [Concomitant]
  11. ESOMEPRAZOLE [Concomitant]
  12. MEDROXYPROGESTERONE [Concomitant]
  13. ESTROGEN [Concomitant]

REACTIONS (2)
  - Peripheral vascular disorder [Unknown]
  - Cellulitis [Unknown]
